FAERS Safety Report 8602139-3 (Version None)
Quarter: 2012Q3

REPORT INFORMATION
  Report Type: 
  Country: None (occurrence: None)
  Receive Date: 20120817
  Receipt Date: 20120813
  Transmission Date: 20120928
  Serious: Yes (Other)
  Sender: FDA-Public Use
  Company Number: US-AMGEN-USASP2011013162

PATIENT
  Age: 32 Year
  Sex: Female
  Weight: 78 kg

DRUGS (2)
  1. ENBREL [Suspect]
     Indication: PSORIATIC ARTHROPATHY
     Dosage: 50 MG, QWK
     Route: 058
     Dates: start: 20080401
  2. ENBREL [Suspect]
     Dosage: 50 MG, QWK
     Dates: start: 20080401, end: 20110216

REACTIONS (12)
  - JOINT SWELLING [None]
  - CROUP INFECTIOUS [None]
  - INJECTION SITE PAIN [None]
  - INJECTION SITE URTICARIA [None]
  - GASTROENTERITIS VIRAL [None]
  - OVARIAN CYST [None]
  - CONTUSION [None]
  - INJECTION SITE HAEMORRHAGE [None]
  - ARTHRALGIA [None]
  - HAEMORRHAGE [None]
  - PANIC ATTACK [None]
  - DYSPNOEA [None]
